FAERS Safety Report 19184466 (Version 1)
Quarter: 2021Q2

REPORT INFORMATION
  Report Type: Spontaneous
  Country: US (occurrence: US)
  Receive Date: 20210427
  Receipt Date: 20210427
  Transmission Date: 20210717
  Serious: No
  Sender: FDA-Public Use
  Company Number: US-GLAXOSMITHKLINE-USCH2021AMR020712

PATIENT
  Sex: Female
  Weight: 63.5 kg

DRUGS (6)
  1. MAALOX ANTACID [Suspect]
     Active Substance: ALUMINUM HYDROXIDE\DIMETHICONE\MAGNESIUM HYDROXIDE
     Indication: SWOLLEN TONGUE
  2. DIPHENHYDRAMINE + LIDOCAIN [Suspect]
     Active Substance: DIPHENHYDRAMINE\LIDOCAINE
     Indication: THROAT IRRITATION
     Dosage: UNK
  3. IBUPROFEN. [Suspect]
     Active Substance: IBUPROFEN
     Indication: THROAT IRRITATION
     Dosage: UNK
  4. MAALOX ANTACID [Suspect]
     Active Substance: ALUMINUM HYDROXIDE\DIMETHICONE\MAGNESIUM HYDROXIDE
     Indication: THROAT IRRITATION
     Dosage: UNK
  5. DIPHENHYDRAMINE + LIDOCAIN [Suspect]
     Active Substance: DIPHENHYDRAMINE\LIDOCAINE
     Indication: SWOLLEN TONGUE
  6. IBUPROFEN. [Suspect]
     Active Substance: IBUPROFEN
     Indication: SWOLLEN TONGUE

REACTIONS (2)
  - Histamine level increased [Unknown]
  - Product use in unapproved indication [Unknown]
